FAERS Safety Report 9268864 (Version 1)
Quarter: 2013Q2

REPORT INFORMATION
  Report Type: Spontaneous
  Country: RU (occurrence: RU)
  Receive Date: 20130503
  Receipt Date: 20130503
  Transmission Date: 20140414
  Serious: Yes (Hospitalization)
  Sender: FDA-Public Use
  Company Number: PHHY2013RU042193

PATIENT
  Age: 81 Year
  Sex: Female

DRUGS (5)
  1. EDICIN [Suspect]
     Indication: CYSTITIS BACTERIAL
     Dosage: 300 MG, UNK
     Route: 042
     Dates: start: 20130415, end: 20130415
  2. NORVASK [Concomitant]
     Route: 048
  3. DIOVAN [Concomitant]
     Route: 048
  4. VEROSPIRON [Concomitant]
     Route: 048
  5. DIUVER [Concomitant]
     Route: 048

REACTIONS (2)
  - Loss of consciousness [Recovered/Resolved]
  - Blood pressure decreased [Recovered/Resolved]
